FAERS Safety Report 9053566 (Version 1)
Quarter: 2013Q1

REPORT INFORMATION
  Report Type: Spontaneous
  Country: US (occurrence: US)
  Receive Date: 20130208
  Receipt Date: 20130208
  Transmission Date: 20140127
  Serious: No
  Sender: FDA-Public Use
  Company Number: US-TARO-2011P1015157

PATIENT
  Age: 82 Year
  Sex: Male
  Weight: 74.84 kg

DRUGS (4)
  1. NYSTATIN + TRIAMCINOLONE ACETONIDE CREAM USP [Suspect]
     Route: 061
     Dates: start: 201110, end: 20111221
  2. PLAVIX [Concomitant]
  3. METFORMIN [Concomitant]
  4. DIOVAN [Concomitant]

REACTIONS (2)
  - Fungal infection [Recovering/Resolving]
  - Drug ineffective [None]
